FAERS Safety Report 16423620 (Version 1)
Quarter: 2019Q2

REPORT INFORMATION
  Report Type: Spontaneous
  Country: CN (occurrence: CN)
  Receive Date: 20190613
  Receipt Date: 20190613
  Transmission Date: 20190711
  Serious: Yes (Other)
  Sender: FDA-Public Use
  Company Number: CN-ROCHE-2326267

PATIENT
  Age: 44 Year
  Sex: Female

DRUGS (44)
  1. MABTHERA [Suspect]
     Active Substance: RITUXIMAB
     Route: 065
     Dates: start: 20161117, end: 20161117
  2. MABTHERA [Suspect]
     Active Substance: RITUXIMAB
     Route: 065
     Dates: start: 20161213, end: 20161213
  3. DEXAMETHASONE. [Concomitant]
     Active Substance: DEXAMETHASONE
     Route: 065
     Dates: start: 20161213
  4. DOXORUBICIN HYDROCHLORIDE. [Concomitant]
     Active Substance: DOXORUBICIN HYDROCHLORIDE
     Route: 065
     Dates: start: 20170103
  5. GEMCITABINE [Concomitant]
     Active Substance: GEMCITABINE\GEMCITABINE HYDROCHLORIDE
     Indication: B-CELL LYMPHOMA
     Route: 065
     Dates: start: 20170715
  6. CYTARABINE. [Concomitant]
     Active Substance: CYTARABINE
     Route: 065
  7. MABTHERA [Suspect]
     Active Substance: RITUXIMAB
     Route: 065
     Dates: start: 20170103, end: 20170103
  8. MABTHERA [Suspect]
     Active Substance: RITUXIMAB
     Route: 065
     Dates: start: 20170715, end: 20170715
  9. DEXAMETHASONE. [Concomitant]
     Active Substance: DEXAMETHASONE
     Route: 065
     Dates: start: 20170103
  10. CYCLOPHOSPHAMIDE. [Concomitant]
     Active Substance: CYCLOPHOSPHAMIDE
     Indication: B-CELL LYMPHOMA
     Route: 065
     Dates: start: 20161020
  11. CYCLOPHOSPHAMIDE. [Concomitant]
     Active Substance: CYCLOPHOSPHAMIDE
     Route: 065
     Dates: start: 20161117
  12. CYCLOPHOSPHAMIDE. [Concomitant]
     Active Substance: CYCLOPHOSPHAMIDE
     Route: 065
     Dates: start: 20170103
  13. CYCLOPHOSPHAMIDE. [Concomitant]
     Active Substance: CYCLOPHOSPHAMIDE
     Route: 065
  14. VINDESINE [Concomitant]
     Active Substance: VINDESINE
     Route: 065
     Dates: start: 20161117
  15. VINDESINE [Concomitant]
     Active Substance: VINDESINE
     Route: 065
     Dates: start: 20170103
  16. GEMCITABINE [Concomitant]
     Active Substance: GEMCITABINE\GEMCITABINE HYDROCHLORIDE
     Route: 065
     Dates: start: 20170816
  17. DEXAMETHASONE. [Concomitant]
     Active Substance: DEXAMETHASONE
     Route: 065
     Dates: start: 20170816
  18. DOXORUBICIN HYDROCHLORIDE. [Concomitant]
     Active Substance: DOXORUBICIN HYDROCHLORIDE
     Route: 065
     Dates: start: 20161213
  19. CISPLATIN. [Concomitant]
     Active Substance: CISPLATIN
     Indication: B-CELL LYMPHOMA
     Route: 065
     Dates: start: 20170715
  20. POSACONAZOLE [Concomitant]
     Active Substance: POSACONAZOLE
     Route: 065
     Dates: start: 20171201
  21. FOSCARNET [Concomitant]
     Active Substance: FOSCARNET
     Route: 065
     Dates: start: 20171019
  22. SULPERAZON [Concomitant]
     Active Substance: CEFOPERAZONE SODIUM\SULBACTAM SODIUM
     Route: 065
     Dates: start: 20171019
  23. PIPERACILLIN AND TAZOBACTAM [Concomitant]
     Active Substance: PIPERACILLIN SODIUM\TAZOBACTAM SODIUM
  24. CYCLOPHOSPHAMIDE. [Concomitant]
     Active Substance: CYCLOPHOSPHAMIDE
     Route: 065
     Dates: start: 20171019, end: 20171021
  25. SEMUSTINE [Concomitant]
     Active Substance: SEMUSTINE
     Route: 065
  26. MELPHALAN. [Concomitant]
     Active Substance: MELPHALAN
     Route: 065
  27. VINDESINE [Concomitant]
     Active Substance: VINDESINE
     Route: 065
     Dates: start: 20161213
  28. GANCICLOVIR. [Concomitant]
     Active Substance: GANCICLOVIR
  29. MABTHERA [Suspect]
     Active Substance: RITUXIMAB
     Indication: B-CELL LYMPHOMA
     Route: 065
     Dates: start: 20161026, end: 20161026
  30. MABTHERA [Suspect]
     Active Substance: RITUXIMAB
     Route: 065
     Dates: start: 20170816, end: 20170816
  31. MABTHERA [Suspect]
     Active Substance: RITUXIMAB
     Route: 065
     Dates: start: 20170921
  32. DEXAMETHASONE. [Concomitant]
     Active Substance: DEXAMETHASONE
     Indication: B-CELL LYMPHOMA
     Route: 065
     Dates: start: 20161017
  33. VINDESINE [Concomitant]
     Active Substance: VINDESINE
     Indication: B-CELL LYMPHOMA
     Route: 065
     Dates: start: 20161026
  34. DOXORUBICIN HYDROCHLORIDE. [Concomitant]
     Active Substance: DOXORUBICIN HYDROCHLORIDE
     Indication: B-CELL LYMPHOMA
     Route: 065
     Dates: start: 20161026
  35. METHOTREXATE. [Concomitant]
     Active Substance: METHOTREXATE
     Indication: B-CELL LYMPHOMA
     Route: 065
     Dates: start: 20170921
  36. CYTARABINE. [Concomitant]
     Active Substance: CYTARABINE
     Indication: B-CELL LYMPHOMA
     Route: 065
     Dates: start: 20170921
  37. CYCLOPHOSPHAMIDE. [Concomitant]
     Active Substance: CYCLOPHOSPHAMIDE
     Route: 065
     Dates: start: 20161213
  38. DOXORUBICIN HYDROCHLORIDE. [Concomitant]
     Active Substance: DOXORUBICIN HYDROCHLORIDE
     Route: 065
     Dates: start: 20161117
  39. FLUDARABINE [Concomitant]
     Active Substance: FLUDARABINE PHOSPHATE
     Indication: B-CELL LYMPHOMA
     Route: 065
     Dates: start: 20171019, end: 20171021
  40. POSACONAZOLE [Concomitant]
     Active Substance: POSACONAZOLE
     Route: 065
     Dates: start: 20171029
  41. IMIPENEM [Concomitant]
     Active Substance: IMIPENEM
     Route: 065
     Dates: start: 20171025
  42. VANCOMYCIN [Concomitant]
     Active Substance: VANCOMYCIN
  43. DEXAMETHASONE. [Concomitant]
     Active Substance: DEXAMETHASONE
     Route: 065
     Dates: start: 20161117
  44. CEFOPERAZONE;SULBACTAM [Concomitant]
     Route: 065
     Dates: start: 20171030

REACTIONS (2)
  - Cerebral cyst [Unknown]
  - Graft versus host disease [Unknown]
